FAERS Safety Report 4403584-2 (Version None)
Quarter: 2004Q3

REPORT INFORMATION
  Report Type: 
  Country: None (occurrence: None)
  Receive Date: 20040721
  Receipt Date: 20040708
  Transmission Date: 20050211
  Serious: Yes (Other)
  Sender: FDA-Public Use
  Company Number: 12622924

PATIENT
  Age: 7 Year
  Sex: Female

DRUGS (5)
  1. ZIDOVUDINE [Suspect]
     Indication: HIV INFECTION
     Dosage: 126MG TWICE PER DAY
     Route: 048
     Dates: start: 20040524, end: 20040621
  2. LAMIVUDINE [Suspect]
     Indication: HIV INFECTION
     Dosage: 66MG TWICE PER DAY
     Route: 048
     Dates: start: 20040524, end: 20040621
  3. DIDANOSINE [Suspect]
     Indication: HIV INFECTION
     Route: 048
     Dates: end: 20040426
  4. STAVUDINE [Suspect]
     Indication: HIV INFECTION
     Route: 048
     Dates: end: 20040424
  5. KALETRA [Suspect]
     Indication: HIV INFECTION
     Route: 048
     Dates: start: 20040524, end: 20040621

REACTIONS (11)
  - ABDOMINAL PAIN [None]
  - ASTHENIA [None]
  - DECREASED APPETITE [None]
  - DYSPNOEA [None]
  - HEADACHE [None]
  - NEUROPATHY PERIPHERAL [None]
  - PAIN IN EXTREMITY [None]
  - PANCREATITIS [None]
  - PRODUCTIVE COUGH [None]
  - PYREXIA [None]
  - VOMITING [None]
